FAERS Safety Report 14543408 (Version 2)
Quarter: 2018Q3

REPORT INFORMATION
  Report Type: Report from Study
  Country: AU (occurrence: AU)
  Receive Date: 20180216
  Receipt Date: 20180829
  Transmission Date: 20181010
  Serious: Yes (Death, Hospitalization)
  Sender: FDA-Public Use
  Company Number: AU-TOLMAR, INC.-2018AU001713

PATIENT

DRUGS (1)
  1. ELIGARD [Suspect]
     Active Substance: LEUPROLIDE ACETATE
     Indication: PROSTATE CANCER
     Dosage: 45 MG, EVERY SIX MONTHS
     Route: 058
     Dates: start: 20170815, end: 201803

REACTIONS (3)
  - Off label use [Unknown]
  - Death [Fatal]
  - General physical health deterioration [Not Recovered/Not Resolved]
